FAERS Safety Report 10968042 (Version 1)
Quarter: 2015Q1

REPORT INFORMATION
  Report Type: Spontaneous
  Country: JP (occurrence: JP)
  Receive Date: 20150330
  Receipt Date: 20150330
  Transmission Date: 20150721
  Serious: Yes (Other)
  Sender: FDA-Public Use
  Company Number: JP-MYLANLABS-2015M1010100

PATIENT

DRUGS (4)
  1. FUROSEMIDE. [Suspect]
     Active Substance: FUROSEMIDE
     Dosage: 1.5 MG/KG/DAY, LATER INCREASED TO 3 MG/KG/DAY
     Route: 065
  2. SPIRONOLACTONE. [Concomitant]
     Active Substance: SPIRONOLACTONE
     Dosage: 3 MG/KG/DAY
     Route: 065
  3. SPIRONOLACTONE. [Concomitant]
     Active Substance: SPIRONOLACTONE
     Dosage: 1.5 MG/KG/DAY, LATER INCREASED TO 3 MG/KG/DAY
     Route: 065
  4. FUROSEMIDE. [Suspect]
     Active Substance: FUROSEMIDE
     Dosage: 3 MG/KG/DAY
     Route: 065

REACTIONS (3)
  - Proteinuria [Recovering/Resolving]
  - Drug ineffective [Recovered/Resolved]
  - Renal impairment [Recovering/Resolving]
